FAERS Safety Report 20492764 (Version 1)
Quarter: 2022Q1

REPORT INFORMATION
  Report Type: Spontaneous
  Country: US (occurrence: US)
  Receive Date: 20220219
  Receipt Date: 20220219
  Transmission Date: 20220424
  Serious: No
  Sender: FDA-Public Use
  Company Number: US-JNJFOC-20220218950

PATIENT
  Age: 52 Year
  Sex: Male

DRUGS (2)
  1. MENS ROGAINE EXTRA STRENGTH [Suspect]
     Active Substance: MINOXIDIL
     Indication: Alopecia
     Dosage: DOSE: A LITTLE SQUIRT ON TOP OF HAIR AND AROUND THE DOME AREA?FREQUENCY: ONCE IN THE MORNING AND SOM
     Route: 061
     Dates: start: 2021
  2. MENS ROGAINE EXTRA STRENGTH [Suspect]
     Active Substance: MINOXIDIL
     Dosage: DOSE: A LITTLE SQUIRT ON TOP OF HAIR AND AROUND THE DOME AREA?FREQUENCY: ONCE IN THE MORNING AND SOM
     Route: 061
     Dates: start: 202201, end: 2022

REACTIONS (4)
  - Hair texture abnormal [Recovering/Resolving]
  - Alopecia [Recovering/Resolving]
  - Inappropriate schedule of product administration [Unknown]
  - Incorrect dose administered [Unknown]

NARRATIVE: CASE EVENT DATE: 20210101
